FAERS Safety Report 7778271-3 (Version None)
Quarter: 2011Q3

REPORT INFORMATION
  Report Type: 
  Country: None (occurrence: None)
  Receive Date: 20110926
  Receipt Date: 20110909
  Transmission Date: 20111222
  Serious: Yes (Other)
  Sender: FDA-Public Use
  Company Number: US-BAYER-2011-053419

PATIENT
  Age: 30 Year
  Sex: Female
  Weight: 100.68 kg

DRUGS (5)
  1. YAZ [Suspect]
     Indication: PREMENSTRUAL SYNDROME
  2. YAZ [Suspect]
     Indication: MENSTRUATION IRREGULAR
  3. YAZ [Suspect]
     Indication: ACNE
     Dosage: UNK
     Dates: start: 20070701, end: 20090601
  4. MOTRIN [Concomitant]
     Dosage: 800 MG, UNK
     Route: 048
     Dates: start: 20080101
  5. ALBUTEROL [Concomitant]
     Route: 045

REACTIONS (4)
  - GALLBLADDER DISORDER [None]
  - EMOTIONAL DISTRESS [None]
  - INJURY [None]
  - CHOLECYSTITIS CHRONIC [None]
